FAERS Safety Report 4658310-9 (Version None)
Quarter: 2005Q2

REPORT INFORMATION
  Report Type: 
  Country: None (occurrence: None)
  Receive Date: 20050510
  Receipt Date: 20050510
  Transmission Date: 20051028
  Serious: No
  Sender: FDA-Public Use
  Company Number: None

PATIENT
  Sex: Male

DRUGS (4)
  1. DEPAKOTE [Suspect]
     Dates: start: 20041001
  2. SEROQUEL [Concomitant]
  3. RISPERDAL [Concomitant]
  4. KLONOPIN [Concomitant]

REACTIONS (1)
  - PLATELET COUNT DECREASED [None]
